FAERS Safety Report 24718554 (Version 1)
Quarter: 2024Q4

REPORT INFORMATION
  Report Type: Spontaneous
  Country: US (occurrence: None)
  Receive Date: 20241210
  Receipt Date: 20241210
  Transmission Date: 20250115
  Serious: No
  Sender: Public
  Company Number: None

PATIENT
  Age: 62 Year
  Sex: Male

DRUGS (1)
  1. WARFARIN SODIUM [Suspect]
     Active Substance: WARFARIN SODIUM
     Indication: Mitral valve repair

REACTIONS (6)
  - Anticoagulation drug level above therapeutic [None]
  - Haemorrhage [None]
  - Haemoglobin decreased [None]
  - Haematocrit decreased [None]
  - Melaena [None]
  - Therapy interrupted [None]

NARRATIVE: CASE EVENT DATE: 20220126
